FAERS Safety Report 13615874 (Version 2)
Quarter: 2017Q2

REPORT INFORMATION
  Report Type: Report from Study
  Country: CA (occurrence: CA)
  Receive Date: 20170606
  Receipt Date: 20170619
  Transmission Date: 20170830
  Serious: Yes (Other)
  Sender: FDA-Public Use
  Company Number: CA-GILEAD-2017-0275542

PATIENT
  Age: 65 Year
  Sex: Male

DRUGS (6)
  1. MS CONTIN [Concomitant]
     Active Substance: MORPHINE SULFATE
  2. DIAZEPAM. [Concomitant]
     Active Substance: DIAZEPAM
  3. PANTOPRAZOLE [Interacting]
     Active Substance: PANTOPRAZOLE
     Dosage: 20 MG, BID
     Route: 048
  4. LEDIPASVIR/SOFOSBUVIR [Suspect]
     Active Substance: LEDIPASVIR\SOFOSBUVIR
     Indication: CHRONIC HEPATITIS C
     Dosage: 1 DF, QD
     Route: 048
  5. ADVAIR HFA [Concomitant]
     Active Substance: FLUTICASONE PROPIONATE\SALMETEROL XINAFOATE
  6. PANTOPRAZOLE [Interacting]
     Active Substance: PANTOPRAZOLE
     Indication: PRODUCT USED FOR UNKNOWN INDICATION
     Dosage: 20 MG, QD
     Route: 048

REACTIONS (3)
  - Treatment failure [Unknown]
  - Genotype drug resistance test positive [Unknown]
  - Drug interaction [Unknown]
